FAERS Safety Report 5387007-5 (Version None)
Quarter: 2007Q3

REPORT INFORMATION
  Report Type: 
  Country: None (occurrence: None)
  Receive Date: 20070713
  Receipt Date: 20070705
  Transmission Date: 20080115
  Serious: Yes (Other)
  Sender: FDA-Public Use
  Company Number: JP-PFIZER INC-2007055962

PATIENT
  Age: 50 Year
  Sex: Female

DRUGS (5)
  1. LIPITOR [Suspect]
     Dosage: DAILY DOSE:5MG
     Route: 048
  2. NORVASC [Suspect]
     Dosage: DAILY DOSE:2.5MG
     Route: 048
  3. CYANOCOBALAMIN [Concomitant]
  4. ALINAMIN F [Concomitant]
  5. EBASTEL [Concomitant]

REACTIONS (1)
  - CEREBRAL INFARCTION [None]
